FAERS Safety Report 6293008-5 (Version None)
Quarter: 2009Q3

REPORT INFORMATION
  Report Type: 
  Country: None (occurrence: None)
  Receive Date: 20090731
  Receipt Date: 20090727
  Transmission Date: 20100115
  Serious: Yes (Other)
  Sender: FDA-Public Use
  Company Number: US-MERCK-0907USA04858

PATIENT
  Age: 5 Year
  Sex: Male

DRUGS (2)
  1. SINGULAIR [Suspect]
     Indication: ASTHMA
     Route: 048
  2. ALBUTEROL [Concomitant]
     Route: 065

REACTIONS (2)
  - AGGRESSION [None]
  - PHYSICAL ASSAULT [None]
